FAERS Safety Report 12064062 (Version 1)
Quarter: 2016Q1

REPORT INFORMATION
  Report Type: Spontaneous
  Country: US (occurrence: US)
  Receive Date: 20160210
  Receipt Date: 20160210
  Transmission Date: 20160526
  Serious: No
  Sender: FDA-Public Use
  Company Number: US-ALLERGAN-1511279US

PATIENT
  Sex: Female
  Weight: 48.73 kg

DRUGS (27)
  1. BOTOX [Suspect]
     Active Substance: ONABOTULINUMTOXINA
     Dosage: 10 UNITS, SINGLE
     Route: 030
     Dates: start: 20150318, end: 20150318
  2. BOTOX [Suspect]
     Active Substance: ONABOTULINUMTOXINA
     Dosage: 15 UNITS, SINGLE
     Route: 030
     Dates: start: 20150318, end: 20150318
  3. BOTOX [Suspect]
     Active Substance: ONABOTULINUMTOXINA
     Dosage: UNK, SINGLE
     Route: 030
     Dates: start: 20141218, end: 20141218
  4. BOTOX [Suspect]
     Active Substance: ONABOTULINUMTOXINA
     Dosage: UNK, SINGLE
     Route: 030
     Dates: start: 20140917, end: 20140917
  5. ZOLOFT [Concomitant]
     Active Substance: SERTRALINE HYDROCHLORIDE
     Dosage: UNK
  6. SYNTHROID [Concomitant]
     Active Substance: LEVOTHYROXINE SODIUM
     Dosage: UNK
  7. BOTOX [Suspect]
     Active Substance: ONABOTULINUMTOXINA
     Dosage: 25 UNITS, SINGLE
     Route: 030
     Dates: start: 20150318, end: 20150318
  8. PRILOSEC [Concomitant]
     Active Substance: OMEPRAZOLE MAGNESIUM
     Dosage: UNK
  9. BOTOX [Suspect]
     Active Substance: ONABOTULINUMTOXINA
     Dosage: 5 UNITS, SINGLE
     Route: 030
     Dates: start: 20150318, end: 20150318
  10. BOTOX [Suspect]
     Active Substance: ONABOTULINUMTOXINA
     Dosage: 10 UNITS, SINGLE
     Route: 030
     Dates: start: 20150318, end: 20150318
  11. BOTOX [Suspect]
     Active Substance: ONABOTULINUMTOXINA
     Dosage: 5 UNITS, SINGLE
     Route: 030
     Dates: start: 20150318, end: 20150318
  12. BOTOX [Suspect]
     Active Substance: ONABOTULINUMTOXINA
     Dosage: 10 UNITS, SINGLE
     Route: 030
     Dates: start: 20150318, end: 20150318
  13. BOTOX [Suspect]
     Active Substance: ONABOTULINUMTOXINA
     Dosage: 15 UNITS, SINGLE
     Route: 030
     Dates: start: 20150318, end: 20150318
  14. BOTOX [Suspect]
     Active Substance: ONABOTULINUMTOXINA
     Dosage: 10 UNITS, SINGLE
     Route: 030
     Dates: start: 20150318, end: 20150318
  15. BOTOX [Suspect]
     Active Substance: ONABOTULINUMTOXINA
     Dosage: 15 UNITS, SINGLE
     Route: 030
     Dates: start: 20150318, end: 20150318
  16. BOTOX [Suspect]
     Active Substance: ONABOTULINUMTOXINA
     Dosage: 165 UNK, SINGLE
     Route: 030
     Dates: start: 20150310, end: 20150310
  17. LISINOPRIL. [Concomitant]
     Active Substance: LISINOPRIL
     Dosage: UNK
  18. TOPAMAX [Concomitant]
     Active Substance: TOPIRAMATE
     Dosage: UNK
  19. BOTOX [Suspect]
     Active Substance: ONABOTULINUMTOXINA
     Dosage: 15 UNITS, SINGLE
     Route: 030
     Dates: start: 20150318, end: 20150318
  20. BOTOX [Suspect]
     Active Substance: ONABOTULINUMTOXINA
     Dosage: 25 UNITS, SINGLE
     Route: 030
     Dates: start: 20150318, end: 20150318
  21. AMBIEN [Concomitant]
     Active Substance: ZOLPIDEM TARTRATE
     Dosage: UNK
  22. BOTOX [Suspect]
     Active Substance: ONABOTULINUMTOXINA
     Indication: MIGRAINE
     Dosage: 5 UNITS, SINGLE
     Route: 030
     Dates: start: 20150318, end: 20150318
  23. CLONAPIN [Concomitant]
     Active Substance: CLONAZEPAM
     Dosage: UNK
  24. ZYPREXA [Concomitant]
     Active Substance: OLANZAPINE
     Dosage: UNK
  25. MAXALT [Concomitant]
     Active Substance: RIZATRIPTAN BENZOATE
     Dosage: UNK
  26. LAMISIL [Concomitant]
     Active Substance: TERBINAFINE HYDROCHLORIDE
     Dosage: UNK
  27. ULTRAM [Concomitant]
     Active Substance: TRAMADOL HYDROCHLORIDE
     Dosage: UNK

REACTIONS (1)
  - Therapeutic response decreased [Unknown]
